FAERS Safety Report 7249033-0 (Version None)
Quarter: 2011Q1

REPORT INFORMATION
  Report Type: 
  Country: None (occurrence: None)
  Receive Date: 20110128
  Receipt Date: 20110121
  Transmission Date: 20110831
  Serious: Yes (Life-Threatening, Hospitalization, Disabling)
  Sender: FDA-Public Use
  Company Number: IT-BRISTOL-MYERS SQUIBB COMPANY-15231418

PATIENT
  Age: 53 Year
  Sex: Male

DRUGS (4)
  1. CILENGITIDE [Suspect]
     Indication: HEAD AND NECK CANCER
     Dosage: RECENT INFUSION:2000MG ,RECENT INFUSION 24JUL10,INTERUPPTED ON 01AUG10.DOSE REINTRODUCED ON 16AUG10
     Route: 042
     Dates: start: 20100721
  2. CETUXIMAB [Suspect]
     Indication: HEAD AND NECK CANCER
     Dosage: RECENT INFUSION :400MG/M2, FORMULATION 5MG/ML, INTERUPPTED ON 01AUG10.DRUG RESTARTED ON 16AUG10
     Route: 042
     Dates: start: 20100721
  3. CISPLATIN [Suspect]
     Indication: HEAD AND NECK CANCER
     Dosage: 1 IN 3 WEEK  ON 21JUL2010:100MG/M2 3.8095MG/M2(80MG/M2)-ONGOING
     Route: 042
     Dates: start: 20100721
  4. FLUOROURACIL [Suspect]
     Indication: HEAD AND NECK CANCER
     Dosage: CONTINOUS INFUSION FROM DAY 1 TO DAY 4. ON 21JUL2010:1000MG/M2 DOSE REDUCED TO 800MG/M2(ONGOING)
     Route: 042
     Dates: start: 20100721

REACTIONS (1)
  - STOMATITIS [None]
